FAERS Safety Report 20924057 (Version 1)
Quarter: 2022Q2

REPORT INFORMATION
  Report Type: Spontaneous
  Country: US (occurrence: US)
  Receive Date: 20220607
  Receipt Date: 20220607
  Transmission Date: 20220721
  Serious: No
  Sender: FDA-Public Use
  Company Number: US-ORGANON-O2205USA001041

PATIENT

DRUGS (1)
  1. PREGNYL [Suspect]
     Active Substance: CHORIOGONADOTROPIN ALFA
     Dosage: 500 UNITS, 2 TIMES PER WEEK

REACTIONS (4)
  - Product container issue [Unknown]
  - Product dose omission issue [Unknown]
  - Product packaging issue [Unknown]
  - No adverse event [Unknown]
